FAERS Safety Report 5242508-5 (Version None)
Quarter: 2007Q1

REPORT INFORMATION
  Report Type: 
  Country: None (occurrence: None)
  Receive Date: 20061201
  Receipt Date: 20060926
  Transmission Date: 20070707
  Serious: No
  Sender: FDA-Public Use
  Company Number: 2006PV011103

PATIENT
  Age: 57 Year
  Sex: Female
  Weight: 86.1834 kg

DRUGS (8)
  1. BYETTA [Suspect]
     Indication: DIABETES MELLITUS NON-INSULIN-DEPENDENT
     Dosage: SEE IMAGE
     Route: 058
     Dates: start: 20060327, end: 20060501
  2. BYETTA [Suspect]
     Indication: DIABETES MELLITUS NON-INSULIN-DEPENDENT
     Dosage: SEE IMAGE
     Route: 058
     Dates: start: 20060502
  3. BYETTA [Suspect]
  4. NIACIN [Suspect]
     Indication: BLOOD CHOLESTEROL
     Dosage: 500 MG;QD
     Dates: start: 20060327
  5. METFORMIN [Concomitant]
  6. ACTOS [Concomitant]
  7. METAGLIP [Concomitant]
  8. LANTUS [Concomitant]

REACTIONS (7)
  - BLOOD GLUCOSE DECREASED [None]
  - BLOOD GLUCOSE INCREASED [None]
  - DECREASED APPETITE [None]
  - DRUG EFFECT DECREASED [None]
  - FLATULENCE [None]
  - FLUSHING [None]
  - WEIGHT DECREASED [None]
